FAERS Safety Report 11159820 (Version 1)
Quarter: 2015Q2

REPORT INFORMATION
  Report Type: Spontaneous
  Country: BR (occurrence: BR)
  Receive Date: 20150603
  Receipt Date: 20150603
  Transmission Date: 20150821
  Serious: Yes (Death)
  Sender: FDA-Public Use
  Company Number: BR-ASTRAZENECA-2015SE52353

PATIENT
  Age: 25291 Day
  Sex: Male
  Weight: 84 kg

DRUGS (4)
  1. CONCOR [Concomitant]
     Active Substance: BISOPROLOL FUMARATE
     Indication: CARDIOMYOPATHY
     Dosage: AT NIGHT
     Dates: start: 20080101
  2. MICARDIS [Concomitant]
     Active Substance: TELMISARTAN
     Indication: CARDIOMYOPATHY
     Dosage: AT NIGHT
     Dates: start: 2008
  3. ALDACTONE [Concomitant]
     Active Substance: SPIRONOLACTONE
     Indication: CARDIOMYOPATHY
     Dosage: AT NIGHT
     Dates: start: 20080101
  4. BRILINTA [Suspect]
     Active Substance: TICAGRELOR
     Indication: ACUTE MYOCARDIAL INFARCTION
     Route: 048
     Dates: start: 20150515

REACTIONS (3)
  - Off label use [Unknown]
  - Multi-organ failure [Fatal]
  - Acute myocardial infarction [Fatal]

NARRATIVE: CASE EVENT DATE: 20150515
